FAERS Safety Report 7897379-5 (Version None)
Quarter: 2011Q4

REPORT INFORMATION
  Report Type: 
  Country: None (occurrence: None)
  Receive Date: 20111107
  Receipt Date: 20111030
  Transmission Date: 20120403
  Serious: Yes (Life-Threatening, Hospitalization)
  Sender: FDA-Public Use
  Company Number: NZ-B.I. PHARMACEUTICALS,INC./RIDGEFIELD-2011-AU-01008AU

PATIENT
  Sex: Male
  Weight: 85 kg

DRUGS (7)
  1. ISOSORBIDE MONO [Concomitant]
     Dosage: 120 MG
  2. SIMVASTATIN [Concomitant]
     Dosage: 40 MG
  3. METOPROLOL TARTRATE [Concomitant]
     Dosage: 190 MG
  4. LISINOPRIL [Concomitant]
     Dosage: 10 MG
  5. DILTIAZEM HCL [Concomitant]
     Dosage: 240 MG
  6. METFORMIN HCL [Concomitant]
     Dosage: 3000 MG
  7. PRADAXA [Suspect]
     Indication: ATRIAL FIBRILLATION
     Dosage: 220 MG
     Dates: start: 20110703, end: 20110805

REACTIONS (1)
  - CEREBROVASCULAR ACCIDENT [None]
